FAERS Safety Report 7533509-2 (Version None)
Quarter: 2011Q2

REPORT INFORMATION
  Report Type: 
  Country: None (occurrence: None)
  Receive Date: 20110608
  Receipt Date: 20110526
  Transmission Date: 20111010
  Serious: Yes (Other)
  Sender: FDA-Public Use
  Company Number: US-UCBSA-027427

PATIENT
  Sex: Male
  Weight: 88.45 kg

DRUGS (2)
  1. CALCIUM CARBONATE [Concomitant]
  2. CIMZIA [Suspect]
     Indication: CROHN'S DISEASE
     Route: 058
     Dates: start: 20110116, end: 20110401

REACTIONS (5)
  - CARDIAC DISORDER [None]
  - DYSPNOEA [None]
  - OEDEMA PERIPHERAL [None]
  - DIZZINESS [None]
  - WHEEZING [None]
